FAERS Safety Report 10221551 (Version 1)
Quarter: 2014Q2

REPORT INFORMATION
  Report Type: Spontaneous
  Country: US (occurrence: US)
  Receive Date: 20140606
  Receipt Date: 20140606
  Transmission Date: 20141212
  Serious: Yes (Other)
  Sender: FDA-Public Use
  Company Number: US-BAXTER-2014BAX029097

PATIENT
  Age: 3 Year
  Sex: Male

DRUGS (1)
  1. GAMMAGARD LIQUID [Suspect]
     Indication: THROMBOCYTOPENIA
     Route: 042

REACTIONS (2)
  - Autoimmune haemolytic anaemia [Recovering/Resolving]
  - Drug ineffective [Not Recovered/Not Resolved]
